FAERS Safety Report 8910331 (Version 2)
Quarter: 2012Q4

REPORT INFORMATION
  Report Type: 
  Country: US (occurrence: US)
  Receive Date: 20121115
  Receipt Date: 20121224
  Transmission Date: 20130627
  Serious: No
  Sender: FDA-Public Use
  Company Number: US-BIOGENIDEC-2012BI052804

PATIENT
  Sex: Female

DRUGS (1)
  1. TYSABRI [Suspect]
     Indication: MULTIPLE SCLEROSIS
     Route: 042
     Dates: start: 20090723, end: 20120725

REACTIONS (6)
  - Confusional state [Unknown]
  - Cognitive disorder [Unknown]
  - General physical health deterioration [Unknown]
  - Frustration [Unknown]
  - Treatment failure [Unknown]
  - Drug ineffective [Unknown]
